FAERS Safety Report 9774796 (Version 2)
Quarter: 2013Q4

REPORT INFORMATION
  Report Type: Spontaneous
  Country: US (occurrence: US)
  Receive Date: 20131220
  Receipt Date: 20131220
  Transmission Date: 20140711
  Serious: No
  Sender: FDA-Public Use
  Company Number: US-GALDERMA-US12415951

PATIENT
  Sex: Male
  Weight: 66 kg

DRUGS (8)
  1. METROGEL (METRONIDAZOLE) TOPICAL GEL, 0.75% [Suspect]
     Indication: ROSACEA
     Dosage: 0.75%
     Route: 061
     Dates: start: 20101007, end: 20101012
  2. ASPIRIN [Concomitant]
     Route: 048
  3. DIETARY SUPPLEMENTS [Concomitant]
  4. EUCERIN CREAM [Concomitant]
     Indication: ROSACEA
     Route: 061
  5. PROBIOTIC [Concomitant]
  6. B-12 [Concomitant]
  7. FOLIC ACID [Concomitant]
  8. MILD FACE SOAP [Concomitant]

REACTIONS (9)
  - Swelling face [Recovered/Resolved]
  - Skin exfoliation [Recovered/Resolved]
  - Pain of skin [Recovered/Resolved]
  - Skin burning sensation [Recovered/Resolved]
  - Paraesthesia [Recovered/Resolved]
  - Pruritus [Recovered/Resolved]
  - Dry skin [Recovered/Resolved]
  - Erythema [Recovered/Resolved]
  - Condition aggravated [Recovered/Resolved]
